FAERS Safety Report 4746575-4 (Version None)
Quarter: 2005Q3

REPORT INFORMATION
  Report Type: 
  Country: None (occurrence: None)
  Receive Date: 20050816
  Receipt Date: 20050816
  Transmission Date: 20060218
  Serious: Yes (Hospitalization)
  Sender: FDA-Public Use
  Company Number: None

PATIENT
  Age: 54 Year
  Sex: Female
  Weight: 122.4712 kg

DRUGS (8)
  1. ATENOLOL [Suspect]
     Indication: HYPERTENSION
     Dosage: 100 MG QD [CHRONIC]
  2. CARTIA XT [Suspect]
     Indication: HYPERTENSION
     Dosage: 360 MG QD
  3. LISINOPRIL [Suspect]
     Indication: HYPERTENSION
     Dosage: 40 MG QD
  4. SPIRONOLACTONE [Suspect]
     Indication: HYPERTENSION
     Dosage: 25 MG BID
  5. POTASSIUM [Suspect]
     Indication: MINERAL SUPPLEMENTATION
     Dosage: 20 MEQ QD
  6. GLYBURIDE [Concomitant]
  7. CLONIDINE [Concomitant]
  8. WARFARIN [Concomitant]

REACTIONS (11)
  - ABDOMINAL DISCOMFORT [None]
  - BLOOD GLUCOSE INCREASED [None]
  - BLOOD POTASSIUM INCREASED [None]
  - BLOOD PRESSURE SYSTOLIC DECREASED [None]
  - DECREASED APPETITE [None]
  - HEART RATE DECREASED [None]
  - HYPOKALAEMIA [None]
  - NAUSEA [None]
  - ORAL INTAKE REDUCED [None]
  - SYNCOPE [None]
  - VOMITING [None]
